FAERS Safety Report 10224944 (Version 1)
Quarter: 2014Q2

REPORT INFORMATION
  Report Type: Spontaneous
  Country: CA (occurrence: CA)
  Receive Date: 20140609
  Receipt Date: 20140609
  Transmission Date: 20141212
  Serious: Yes (Death)
  Sender: FDA-Public Use
  Company Number: CA-ALLERGAN-1412785US

PATIENT
  Age: 34 Year
  Sex: Female

DRUGS (2)
  1. BOTOX [Suspect]
     Indication: MIGRAINE
     Dosage: UNK, SINGLE
     Dates: start: 2013, end: 2013
  2. BOTOX [Suspect]
     Dosage: UNK
     Dates: start: 2013, end: 2013

REACTIONS (1)
  - Death [Fatal]
